FAERS Safety Report 5696308-2 (Version None)
Quarter: 2008Q2

REPORT INFORMATION
  Report Type: 
  Country: None (occurrence: None)
  Receive Date: 20080407
  Receipt Date: 20080326
  Transmission Date: 20081010
  Serious: Yes (Other)
  Sender: FDA-Public Use
  Company Number: US-PFIZER INC-2008010942

PATIENT
  Sex: Female

DRUGS (9)
  1. DILANTIN [Suspect]
     Indication: EPILEPSY
  2. RANITIDINE [Concomitant]
  3. PHENOBARBITAL TAB [Concomitant]
  4. CLORAZEPATE [Concomitant]
  5. TERIPARATIDE [Concomitant]
  6. ACCOLATE [Concomitant]
  7. FLOVENT [Concomitant]
  8. ALBUTEROL [Concomitant]
  9. SEREVENT [Concomitant]

REACTIONS (4)
  - ANTICONVULSANT DRUG LEVEL INCREASED [None]
  - CONVULSION [None]
  - DRUG TOXICITY [None]
  - TREATMENT NONCOMPLIANCE [None]
